FAERS Safety Report 7478216-X (Version None)
Quarter: 2011Q2

REPORT INFORMATION
  Report Type: 
  Country: None (occurrence: None)
  Receive Date: 20110513
  Receipt Date: 20110505
  Transmission Date: 20111010
  Serious: Yes (Other)
  Sender: FDA-Public Use
  Company Number: PHHY2011MX38291

PATIENT
  Sex: Female

DRUGS (1)
  1. FORADIL [Suspect]
     Indication: ASTHMA
     Dosage: 2 DF, QD
     Dates: start: 20101101

REACTIONS (4)
  - ASPHYXIA [None]
  - INCREASED UPPER AIRWAY SECRETION [None]
  - DYSPNOEA [None]
  - INSOMNIA [None]
